FAERS Safety Report 5068745-0 (Version None)
Quarter: 2006Q3

REPORT INFORMATION
  Report Type: 
  Country: None (occurrence: None)
  Receive Date: 20060802
  Receipt Date: 20060314
  Transmission Date: 20061208
  Serious: No
  Sender: FDA-Public Use
  Company Number: US-BRISTOL-MYERS SQUIBB COMPANY-13314620

PATIENT
  Age: 72 Year
  Sex: Male
  Weight: 80 kg

DRUGS (7)
  1. COUMADIN [Suspect]
     Indication: CORONARY ARTERIAL STENT INSERTION
     Dates: start: 19990101
  2. PLAVIX [Suspect]
     Indication: CORONARY ARTERIAL STENT INSERTION
     Dates: start: 19990101
  3. ASPIRIN [Concomitant]
     Dates: start: 19990101
  4. LIPITOR [Concomitant]
     Dates: start: 19900101
  5. TOPROL-XL [Concomitant]
     Dates: start: 20000101
  6. LISINOPRIL [Concomitant]
     Dates: start: 20000101
  7. MULTI-VITAMIN [Concomitant]
     Dosage: DURATION: 20 YEARS

REACTIONS (1)
  - EPISTAXIS [None]
